FAERS Safety Report 13906835 (Version 2)
Quarter: 2017Q4

REPORT INFORMATION
  Report Type: Spontaneous
  Country: IT (occurrence: IT)
  Receive Date: 20170825
  Receipt Date: 20171004
  Transmission Date: 20180320
  Serious: Yes (Hospitalization, Other)
  Sender: FDA-Public Use
  Company Number: IT-PFIZER INC-2017368618

PATIENT
  Age: 62 Year
  Sex: Female

DRUGS (5)
  1. ISOPTIN /00014301/ [Concomitant]
  2. DIDROGYL [Concomitant]
     Active Substance: CALCIFEDIOL
  3. SERETIDE [Concomitant]
     Active Substance: FLUTICASONE PROPIONATE\SALMETEROL XINAFOATE
  4. PANTOPAN [Concomitant]
     Active Substance: PANTOPRAZOLE SODIUM
  5. HALCION [Suspect]
     Active Substance: TRIAZOLAM
     Indication: INSOMNIA
     Dosage: 10 DF, SINGLE
     Route: 048
     Dates: start: 20170818, end: 20170818

REACTIONS (4)
  - Fall [Unknown]
  - Syncope [Unknown]
  - Drug use disorder [Unknown]
  - Intentional self-injury [Unknown]

NARRATIVE: CASE EVENT DATE: 20170818
